FAERS Safety Report 7757344-5 (Version None)
Quarter: 2011Q3

REPORT INFORMATION
  Report Type: 
  Country: None (occurrence: None)
  Receive Date: 20110916
  Receipt Date: 20110909
  Transmission Date: 20111222
  Serious: Yes (Other)
  Sender: FDA-Public Use
  Company Number: PHHY2011GB80659

PATIENT
  Age: 76 Year
  Sex: Female
  Weight: 67 kg

DRUGS (30)
  1. SIMVASTATIN [Suspect]
     Dates: start: 20110725, end: 20110822
  2. BECLOMETHASONE DIPROPIONATE [Concomitant]
     Dates: start: 20110614, end: 20110712
  3. HYDROXOCOBALAMIN [Concomitant]
     Dates: start: 20110519, end: 20110712
  4. MEPTAZINOL [Concomitant]
     Dates: start: 20110815
  5. OMEPRAZOLE [Concomitant]
     Dates: start: 20110519, end: 20110712
  6. CLOPIDOGREL [Concomitant]
     Dates: start: 20110617, end: 20110717
  7. HYPROMELLOSE [Concomitant]
     Dates: start: 20110519, end: 20110712
  8. ACETAMINOPHEN [Concomitant]
     Dates: start: 20110614, end: 20110626
  9. AQUEOUS CREAM [Concomitant]
     Dates: start: 20110519, end: 20110616
  10. CALCICHEW D3 [Concomitant]
     Dates: start: 20110519
  11. GABAPENTIN [Concomitant]
     Dates: start: 20110519, end: 20110712
  12. HYPROMELLOSE [Concomitant]
     Dosage: UNK
     Dates: start: 20110718
  13. DOCUSATE SODIUM [Concomitant]
     Dates: start: 20110519, end: 20110714
  14. HYDROXOCOBALAMIN [Concomitant]
     Dates: start: 20110816, end: 20110817
  15. LOFEPRAMINE [Concomitant]
     Dosage: UNK
     Dates: start: 20110418
  16. LORATADINE [Concomitant]
     Dates: start: 20110617, end: 20110717
  17. OMEPRAZOLE [Concomitant]
     Dates: start: 20110718
  18. SIMVASTATIN [Suspect]
     Dates: start: 20110901
  19. LOFEPRAMINE [Concomitant]
     Dates: start: 20110617, end: 20110717
  20. RAMIPRIL [Concomitant]
     Dates: start: 20110718
  21. SLOZEM [Concomitant]
     Dates: start: 20110718
  22. BECLOMETHASONE DIPROPIONATE [Concomitant]
     Dosage: UNK
     Dates: start: 20110718
  23. DOCUSATE SODIUM [Concomitant]
     Dates: start: 20110718
  24. HYDROXOCOBALAMIN [Concomitant]
     Dates: start: 20110720, end: 20110721
  25. TRIMETHOPRIM [Concomitant]
     Dates: start: 20110608, end: 20110615
  26. GABAPENTIN [Concomitant]
     Dates: start: 20110718
  27. RAMIPRIL [Concomitant]
     Dates: start: 20110519, end: 20110712
  28. SLOZEM [Concomitant]
     Dates: start: 20110519, end: 20110712
  29. ZOPICLONE [Concomitant]
     Dates: start: 20110519, end: 20110712
  30. ZOPICLONE [Concomitant]
     Dates: start: 20110718

REACTIONS (1)
  - CONTUSION [None]
